FAERS Safety Report 7769578-4 (Version None)
Quarter: 2011Q3

REPORT INFORMATION
  Report Type: 
  Country: None (occurrence: None)
  Receive Date: 20110922
  Receipt Date: 20110328
  Transmission Date: 20111222
  Serious: No
  Sender: FDA-Public Use
  Company Number: US-ASTRAZENECA-2011SE17426

PATIENT
  Age: 432 Month
  Sex: Male

DRUGS (8)
  1. GABAPENTIN [Concomitant]
     Dates: start: 20100601
  2. SEROQUEL [Suspect]
     Route: 048
     Dates: start: 20100601
  3. ZYPREXA [Concomitant]
     Dates: start: 20100601
  4. TRAZODONE HYDROCHLORIDE [Concomitant]
     Dates: start: 20100601
  5. INVEGA [Concomitant]
     Dates: start: 20100601
  6. RISPERDAL [Concomitant]
     Dates: start: 20100601
  7. ABILIFY [Concomitant]
     Dates: start: 20100601
  8. LEXAPRO [Concomitant]
     Dates: start: 20100601

REACTIONS (3)
  - MUSCLE SPASMS [None]
  - HEPATITIS C [None]
  - TYPE 1 DIABETES MELLITUS [None]
